FAERS Safety Report 9547462 (Version 1)
Quarter: 2013Q2

REPORT INFORMATION
  Report Type: Spontaneous
  Country: US (occurrence: None)
  Receive Date: 20130524
  Receipt Date: 20130524
  Transmission Date: 20140414
  Serious: No
  Sender: FDA-Public Use
  Company Number: PHEH2013US004359

PATIENT
  Age: 52 Year
  Sex: Male
  Weight: 90.7 kg

DRUGS (3)
  1. GILENYA (FINGOLIMOD) CAPSULE, 0.5MG [Suspect]
  2. ANAGALESICS (NO INGREDIENTS/SUBSTANCES [Concomitant]
  3. AMPYRA (FAMPRIDINE) [Concomitant]

REACTIONS (1)
  - Pain in extremity [None]
